FAERS Safety Report 10287282 (Version 1)
Quarter: 2014Q3

REPORT INFORMATION
  Report Type: Spontaneous
  Country: US (occurrence: None)
  Receive Date: 20140707
  Receipt Date: 20140707
  Transmission Date: 20150326
  Serious: Yes (Other)
  Sender: FDA-Public Use
  Company Number: None

PATIENT
  Age: 50 Year
  Sex: Male

DRUGS (1)
  1. EUFLEXXA [Suspect]
     Active Substance: HYALURONATE SODIUM
     Indication: OSTEOARTHRITIS
     Dosage: 20MG/2ML?QWKX3?INTRAARTICULCOLY HYA
     Route: 014
     Dates: start: 20140513

REACTIONS (1)
  - Miliaria [None]

NARRATIVE: CASE EVENT DATE: 20140513
